FAERS Safety Report 18155316 (Version 1)
Quarter: 2020Q3

REPORT INFORMATION
  Report Type: Spontaneous
  Country: DE (occurrence: DE)
  Receive Date: 20200817
  Receipt Date: 20200817
  Transmission Date: 20201103
  Serious: Yes (Other)
  Sender: FDA-Public Use
  Company Number: DE-TEVA-2020-DE-1813598

PATIENT
  Age: 1 Day
  Sex: Female
  Weight: 2.39 kg

DRUGS (10)
  1. HUMIRA [Suspect]
     Active Substance: ADALIMUMAB
     Indication: JUVENILE IDIOPATHIC ARTHRITIS
     Dosage: 40 [MG/2WK ]
     Route: 064
     Dates: start: 20190718, end: 20200124
  2. SULFASALAZINE DELAYED?RELEASE [Suspect]
     Active Substance: SULFASALAZINE
     Indication: JUVENILE IDIOPATHIC ARTHRITIS
     Dosage: 3000 [MG/D (1500?0?1500) ] 2 SEPARATED DOSES
     Route: 064
     Dates: start: 20190424, end: 20200124
  3. VIGANTOLETTEN [Concomitant]
     Active Substance: CHOLECALCIFEROL
     Indication: OSTEOPOROSIS PROPHYLAXIS
     Dosage: 1000 IU (INTERNATIONAL UNIT) DAILY;
     Route: 064
     Dates: start: 20190424, end: 20200124
  4. PREDNISOLONE RATIOPHARM [Suspect]
     Active Substance: PREDNISOLONE
     Indication: JUVENILE IDIOPATHIC ARTHRITIS
     Dosage: 5 MILLIGRAM DAILY; 5 [MG/D (5?0?0) ]
     Route: 064
     Dates: start: 20190424, end: 20200124
  5. LODOTRA [Suspect]
     Active Substance: PREDNISONE
     Indication: JUVENILE IDIOPATHIC ARTHRITIS
     Dosage: 5 MILLIGRAM DAILY; 5 [MG/D (0?0?5) ]
     Route: 064
     Dates: start: 20190424, end: 20200124
  6. NAUSEMA [Concomitant]
     Indication: NAUSEA
     Dosage: 30 [MG/D (3X10) ] / 12 [UG/D (3X4) ] / 6 [MG/D (3X2) ]
     Route: 064
  7. FOLSAN [Concomitant]
     Active Substance: FOLIC ACID
     Indication: PROPHYLAXIS OF NEURAL TUBE DEFECT
     Dosage: 5 MILLIGRAM DAILY;
     Route: 064
     Dates: start: 20190424, end: 20200124
  8. CYTOTEC [Concomitant]
     Active Substance: MISOPROSTOL
     Indication: LABOUR INDUCTION
     Route: 064
     Dates: start: 20200124, end: 20200124
  9. CALCIUM VERLA 600MG [Concomitant]
     Indication: OSTEOPOROSIS PROPHYLAXIS
     Dosage: 600 MILLIGRAM DAILY;
     Route: 064
     Dates: start: 20190424, end: 20200124
  10. IBUPROFEN. [Concomitant]
     Active Substance: IBUPROFEN
     Indication: JUVENILE IDIOPATHIC ARTHRITIS
     Dosage: 1600 [MG/D (2X800) ] 2 SEPARATED DOSES
     Route: 064

REACTIONS (2)
  - Foetal exposure during pregnancy [Unknown]
  - Small for dates baby [Recovering/Resolving]

NARRATIVE: CASE EVENT DATE: 20200124
